FAERS Safety Report 21521298 (Version 1)
Quarter: 2022Q4

REPORT INFORMATION
  Report Type: Spontaneous
  Country: BE (occurrence: BE)
  Receive Date: 20221028
  Receipt Date: 20221028
  Transmission Date: 20230112
  Serious: Yes (Other)
  Sender: FDA-Public Use
  Company Number: None

PATIENT
  Age: 42 Year
  Sex: Female
  Weight: 57 kg

DRUGS (5)
  1. MIRENA [Suspect]
     Active Substance: LEVONORGESTREL
     Indication: Contraception
     Dosage: 20?G/DAY
     Route: 015
     Dates: start: 20210504, end: 20221004
  2. MIRENA [Suspect]
     Active Substance: LEVONORGESTREL
     Indication: Adenomyosis
  3. DOCONEXENT\ICOSAPENT [Concomitant]
     Active Substance: DOCONEXENT\ICOSAPENT
  4. ENZYMES NOS [Concomitant]
  5. PALMIDROL [Concomitant]
     Active Substance: PALMIDROL

REACTIONS (21)
  - Arthralgia [Recovering/Resolving]
  - Stress [Recovering/Resolving]
  - Panic attack [Recovering/Resolving]
  - Dissociation [Recovering/Resolving]
  - Breast pain [Recovering/Resolving]
  - Dizziness [Recovering/Resolving]
  - Chills [Recovering/Resolving]
  - Tinnitus [Recovering/Resolving]
  - Dyspnoea [Recovering/Resolving]
  - Neck pain [Recovering/Resolving]
  - Palpitations [Recovering/Resolving]
  - Back pain [Recovering/Resolving]
  - Hair texture abnormal [Recovering/Resolving]
  - Depersonalisation/derealisation disorder [Recovering/Resolving]
  - Anxiety [Recovering/Resolving]
  - Insomnia [Recovering/Resolving]
  - Head discomfort [Recovering/Resolving]
  - Fear [Recovering/Resolving]
  - Alopecia [Recovering/Resolving]
  - Pollakiuria [Recovering/Resolving]
  - Disturbance in attention [Recovering/Resolving]

NARRATIVE: CASE EVENT DATE: 20210901
